FAERS Safety Report 24572065 (Version 1)
Quarter: 2024Q4

REPORT INFORMATION
  Report Type: Spontaneous
  Country: BE (occurrence: BE)
  Receive Date: 20241101
  Receipt Date: 20241101
  Transmission Date: 20250115
  Serious: Yes (Death)
  Sender: VERTEX
  Company Number: None

PATIENT
  Age: 35 Year
  Sex: Male
  Weight: 80 kg

DRUGS (16)
  1. ELEXACAFTOR\IVACAFTOR\TEZACAFTOR [Suspect]
     Active Substance: ELEXACAFTOR\IVACAFTOR\TEZACAFTOR
     Indication: Cystic fibrosis
     Dosage: 2 TABS IN AM (75 MG IVA/ 50  MG TEZA/ 100 MG ELEXA)
     Route: 048
     Dates: start: 20220920, end: 20240609
  2. KALYDECO [Suspect]
     Active Substance: IVACAFTOR
     Indication: Cystic fibrosis
     Dosage: 1 TABLET IN THE EVENING (150 MG IVACAFTOR)
     Route: 048
     Dates: start: 20210608, end: 20240609
  3. CAYSTON [Concomitant]
     Active Substance: AZTREONAM
     Indication: Cystic fibrosis
  4. PULMOZYME [Concomitant]
     Active Substance: DORNASE ALFA
     Indication: Cystic fibrosis
  5. MUCOCLEAR [Concomitant]
     Indication: Cystic fibrosis
     Dosage: 4 ML 2X/DAY
  6. VENTOLIN [Concomitant]
     Active Substance: ALBUTEROL SULFATE
     Indication: Cystic fibrosis
     Dosage: 0.5 ML 2X/DAY
  7. VENTOLIN [Concomitant]
     Active Substance: ALBUTEROL SULFATE
     Dosage: 2 PUFFS IF NECESSARY
  8. AZITHROMYCIN [Concomitant]
     Active Substance: AZITHROMYCIN
     Indication: Cystic fibrosis
     Dosage: 400 MILLIGRAM, QD
     Route: 048
  9. SERETIDE [Concomitant]
     Active Substance: FLUTICASONE PROPIONATE\SALMETEROL XINAFOATE
     Indication: Cystic fibrosis
     Dosage: 25/250; 2 PUFFS 2X PER DAY
  10. ESOMEPRAZOLE [Concomitant]
     Active Substance: ESOMEPRAZOLE
     Indication: Gastrointestinal disorder prophylaxis
     Dosage: 1 DOSAGE FORM, QD
     Route: 048
  11. CREON [Concomitant]
     Active Substance: PANCRELIPASE AMYLASE\PANCRELIPASE LIPASE\PANCRELIPASE PROTEASE
     Indication: Pancreatic failure
     Route: 048
  12. DIFLUCAN [Concomitant]
     Active Substance: FLUCONAZOLE
     Indication: Fungal infection
     Dosage: 1 DOSAGE FORM/ WEEK, IF NECESSARY
     Route: 048
  13. TRANEXAMIC ACID [Concomitant]
     Active Substance: TRANEXAMIC ACID
     Indication: Haemoptysis
     Dosage: 1 G/10 ML; IF NECESSARY
     Route: 048
  14. POLYETHYLENE GLYCOL 3350\POTASSIUM CHLORIDE\SODIUM BICARBONATE\SODIUM [Concomitant]
     Active Substance: POLYETHYLENE GLYCOL 3350\POTASSIUM CHLORIDE\SODIUM BICARBONATE\SODIUM CHLORIDE
     Indication: Constipation
     Dosage: 1-2 SACHETS 1X PER DAY IF NECESSARY
     Route: 048
  15. EBASTINE [Concomitant]
     Active Substance: EBASTINE
     Indication: Hypersensitivity
     Dosage: IF NECESSARY
     Route: 048
  16. ADEK [Concomitant]
     Route: 048

REACTIONS (3)
  - Coronary artery occlusion [Fatal]
  - Cardiac ventricular thrombosis [Fatal]
  - Atherosclerotic plaque rupture [Fatal]

NARRATIVE: CASE EVENT DATE: 20240609
